FAERS Safety Report 8321972-9 (Version None)
Quarter: 2012Q2

REPORT INFORMATION
  Report Type: 
  Country: None (occurrence: None)
  Receive Date: 20120430
  Receipt Date: 20120424
  Transmission Date: 20120825
  Serious: Yes (Death)
  Sender: FDA-Public Use
  Company Number: US-JNJFOC-20120315100

PATIENT
  Sex: Female
  Weight: 109.77 kg

DRUGS (12)
  1. ZOLPIDEM [Concomitant]
     Route: 065
  2. CLONAZEPAM [Concomitant]
     Dosage: TWICE A DAY OR THRICE A DAY
     Route: 065
  3. LISINOPRIL [Concomitant]
     Indication: HYPERTENSION
     Route: 065
  4. INVEGA SUSTENNA [Suspect]
     Indication: SCHIZOPHRENIA
     Route: 030
  5. SAPHRIS [Concomitant]
     Indication: SCHIZOPHRENIA
     Route: 060
  6. INVEGA [Suspect]
     Indication: SCHIZOPHRENIA
     Route: 048
     Dates: end: 20120227
  7. INVEGA [Suspect]
     Indication: SCHIZOAFFECTIVE DISORDER
     Route: 048
     Dates: end: 20120227
  8. ZOLOFT [Suspect]
     Indication: DEPRESSION
     Route: 065
  9. METFORMIN HCL [Concomitant]
     Indication: DIABETES MELLITUS
     Route: 065
  10. DEPAKOTE [Concomitant]
     Route: 065
  11. GEODON [Suspect]
     Indication: SCHIZOPHRENIA
     Route: 065
  12. TRAZODONE HCL [Concomitant]
     Route: 065

REACTIONS (2)
  - HYPERTENSION [None]
  - MYOCARDIAL INFARCTION [None]
